FAERS Safety Report 8539574-8 (Version None)
Quarter: 2012Q3

REPORT INFORMATION
  Report Type: 
  Country: None (occurrence: None)
  Receive Date: 20120726
  Receipt Date: 20120712
  Transmission Date: 20120928
  Serious: No
  Sender: FDA-Public Use
  Company Number: JP-ELI_LILLY_AND_COMPANY-JP201207001818

PATIENT
  Age: 36 Year
  Sex: Female

DRUGS (3)
  1. SEROQUEL [Concomitant]
     Dosage: UNK
  2. ZYPREXA [Suspect]
     Dosage: 20 MG, QD
     Route: 048
  3. VALPROATE SODIUM [Concomitant]
     Dosage: UNK

REACTIONS (1)
  - PANCYTOPENIA [None]
